FAERS Safety Report 16127841 (Version 1)
Quarter: 2019Q1

REPORT INFORMATION
  Report Type: Spontaneous
  Country: US (occurrence: US)
  Receive Date: 20190225
  Receipt Date: 20190225
  Transmission Date: 20190418
  Serious: Yes (Hospitalization)
  Sender: FDA-Public Use
  Company Number: None

PATIENT
  Age: 54 Year
  Sex: Male

DRUGS (7)
  1. TACROLIMUS 0.5 MG CAPSULE [Suspect]
     Active Substance: TACROLIMUS
     Indication: RENAL DISORDER
     Dosage: 1 MG Q AM AND 0.5 MG Q HS BID ORAL
     Route: 048
     Dates: start: 20190223
  2. LOPERAMIDE [Concomitant]
     Active Substance: LOPERAMIDE
  3. METOPROLOL TAR [Concomitant]
     Active Substance: METOPROLOL TARTRATE
  4. PREDNISONE. [Concomitant]
     Active Substance: PREDNISONE
  5. PRAVASTATIN. [Concomitant]
     Active Substance: PRAVASTATIN
  6. ALLOPURINOL. [Concomitant]
     Active Substance: ALLOPURINOL
  7. LISINOPRIL. [Concomitant]
     Active Substance: LISINOPRIL

REACTIONS (3)
  - Escherichia infection [None]
  - Therapy cessation [None]
  - Diarrhoea [None]
